FAERS Safety Report 11205278 (Version 1)
Quarter: 2015Q2

REPORT INFORMATION
  Report Type: Spontaneous
  Country: PT (occurrence: PT)
  Receive Date: 20150622
  Receipt Date: 20150622
  Transmission Date: 20150821
  Serious: Yes (Other)
  Sender: FDA-Public Use
  Company Number: PT-ACTAVIS-2015-12108

PATIENT
  Age: 66 Year
  Sex: Female
  Weight: 62 kg

DRUGS (1)
  1. DOCETAXEL ACTAVIS [Suspect]
     Active Substance: DOCETAXEL
     Indication: BREAST CANCER
     Dosage: 160 MG, 1/ THREE WEEKS; ADMINISTRATION CORRESPONDED TO THE 2ND MANAGEMENT CYCLE.
     Route: 042
     Dates: start: 201505, end: 201505

REACTIONS (1)
  - Skin hyperpigmentation [Unknown]

NARRATIVE: CASE EVENT DATE: 201505
